FAERS Safety Report 7288386-4 (Version None)
Quarter: 2011Q1

REPORT INFORMATION
  Report Type: 
  Country: None (occurrence: None)
  Receive Date: 20110211
  Receipt Date: 20110207
  Transmission Date: 20110831
  Serious: Yes (Hospitalization)
  Sender: FDA-Public Use
  Company Number: A0779036A

PATIENT
  Age: 58 Year
  Sex: Female

DRUGS (12)
  1. METFORMIN HCL [Concomitant]
  2. AMBIEN [Concomitant]
  3. LANTUS [Concomitant]
  4. GLUCOTROL XL [Concomitant]
  5. AVANDIA [Suspect]
     Indication: DIABETES MELLITUS
     Dosage: 4MG TWICE PER DAY
     Route: 048
     Dates: start: 20031007, end: 20070301
  6. AMITRIPTYLINE HCL [Concomitant]
  7. PREVACID [Concomitant]
  8. SIMVASTATIN [Concomitant]
  9. ZETIA [Concomitant]
  10. PAXIL [Concomitant]
  11. METOPROLOL [Concomitant]
  12. VYTORIN [Concomitant]

REACTIONS (1)
  - CEREBROVASCULAR ACCIDENT [None]
